FAERS Safety Report 19270405 (Version 1)
Quarter: 2021Q2

REPORT INFORMATION
  Report Type: Spontaneous
  Country: US (occurrence: US)
  Receive Date: 20210518
  Receipt Date: 20210518
  Transmission Date: 20210717
  Serious: No
  Sender: FDA-Public Use
  Company Number: US-PFIZER INC-2021504353

PATIENT
  Age: 55 Year
  Sex: Female
  Weight: 113.38 kg

DRUGS (3)
  1. DOXYCYCLINE HYCLATE. [Suspect]
     Active Substance: DOXYCYCLINE HYCLATE
     Indication: CELLULITIS
     Dosage: UNK
     Route: 048
  2. ELIQUIS [Concomitant]
     Active Substance: APIXABAN
     Indication: VENOUS THROMBOSIS
     Dosage: 2.5 MG OR 5 MG BID
     Route: 048
     Dates: start: 20201019
  3. GEMCITABINE. [Concomitant]
     Active Substance: GEMCITABINE
     Indication: LUNG ADENOCARCINOMA
     Dosage: UNK

REACTIONS (2)
  - Drug ineffective for unapproved indication [Unknown]
  - Off label use [Unknown]
